FAERS Safety Report 12210636 (Version 1)
Quarter: 2016Q1

REPORT INFORMATION
  Report Type: Spontaneous
  Country: GB (occurrence: GB)
  Receive Date: 20160325
  Receipt Date: 20160325
  Transmission Date: 20160526
  Serious: Yes (Other)
  Sender: FDA-Public Use
  Company Number: GB-TEVA-645318ACC

PATIENT
  Age: 62 Year
  Sex: Male

DRUGS (2)
  1. CLOPIDOGREL [Concomitant]
     Active Substance: CLOPIDOGREL BISULFATE
  2. RAMIPRIL. [Suspect]
     Active Substance: RAMIPRIL
     Dosage: UNKNOWN
     Dates: start: 201503

REACTIONS (2)
  - Sepsis [Unknown]
  - Angioedema [Unknown]
